FAERS Safety Report 8759160 (Version 1)
Quarter: 2012Q4

REPORT INFORMATION
  Report Type: 
  Country: US (occurrence: US)
  Receive Date: 20120829
  Receipt Date: 20120829
  Transmission Date: 20130627
  Serious: Yes (Other)
  Sender: FDA-Public Use
  Company Number: US-SANOFI-AVENTIS-2012SA059668

PATIENT
  Sex: Male

DRUGS (1)
  1. AMBIEN [Suspect]
     Indication: SLEEP DISORDER
     Route: 048
     Dates: end: 201206

REACTIONS (22)
  - Injury [Unknown]
  - Malaise [Unknown]
  - Mental impairment [Unknown]
  - Loss of consciousness [Unknown]
  - Aggression [Unknown]
  - Hallucination [Unknown]
  - Erectile dysfunction [Unknown]
  - Personality change [Unknown]
  - Feeling abnormal [Unknown]
  - Crying [Unknown]
  - Dysarthria [Unknown]
  - Coordination abnormal [Unknown]
  - Disturbance in social behaviour [Unknown]
  - Amnesia [Unknown]
  - Hangover [Unknown]
  - Gait disturbance [Unknown]
  - Middle insomnia [Unknown]
  - Drug ineffective [Unknown]
  - Abnormal sleep-related event [Unknown]
  - Nightmare [Not Recovered/Not Resolved]
  - Nausea [Unknown]
  - Mood swings [Unknown]
